FAERS Safety Report 9328211 (Version 6)
Quarter: 2014Q1

REPORT INFORMATION
  Report Type: Report from Study
  Country: US (occurrence: US)
  Receive Date: 20130604
  Receipt Date: 20140203
  Transmission Date: 20141002
  Serious: Yes (Death)
  Sender: FDA-Public Use
  Company Number: US-JNJFOC-20130518324

PATIENT
  Sex: Male
  Weight: 137.44 kg

DRUGS (9)
  1. STELARA [Suspect]
     Indication: PSORIASIS
     Route: 058
     Dates: start: 20110803, end: 20130517
  2. STELARA [Suspect]
     Indication: PSORIASIS
     Route: 058
     Dates: start: 20110511
  3. PROVENTIL [Concomitant]
     Route: 055
  4. METHADONE [Concomitant]
     Route: 065
  5. TRICOR [Concomitant]
     Indication: BLOOD CHOLESTEROL INCREASED
     Route: 065
     Dates: start: 20121218, end: 20130517
  6. DOXYCYCLINE [Concomitant]
     Route: 065
     Dates: start: 20121116, end: 20130105
  7. OXYCODONE HCL + ACETAMINOPHEN [Concomitant]
     Indication: RHEUMATOID ARTHRITIS
     Dosage: 10 MG/325
     Route: 065
     Dates: start: 20121116, end: 20130517
  8. PREDNISONE [Concomitant]
     Route: 065
  9. SORIATANE [Concomitant]
     Route: 065

REACTIONS (1)
  - Hypertensive heart disease [Fatal]
